FAERS Safety Report 9697394 (Version 1)
Quarter: 2013Q4

REPORT INFORMATION
  Report Type: Spontaneous
  Country: CA (occurrence: CA)
  Receive Date: 20131120
  Receipt Date: 20131120
  Transmission Date: 20140711
  Serious: Yes (Other)
  Sender: FDA-Public Use
  Company Number: CA-JNJFOC-20131111773

PATIENT
  Sex: Female

DRUGS (1)
  1. LISTERINE ZERO [Suspect]
     Indication: THERAPEUTIC GARGLE
     Route: 048
     Dates: start: 20131105

REACTIONS (3)
  - Choking sensation [Unknown]
  - Dyspnoea [Unknown]
  - Product contamination physical [Unknown]
